FAERS Safety Report 5657840-0 (Version None)
Quarter: 2008Q1

REPORT INFORMATION
  Report Type: 
  Country: None (occurrence: None)
  Receive Date: 20080310
  Receipt Date: 20080107
  Transmission Date: 20080703
  Serious: No
  Sender: FDA-Public Use
  Company Number: US-ASTRAZENECA-2008UW00418

PATIENT

DRUGS (1)
  1. ZESTRIL [Suspect]

REACTIONS (2)
  - HAIR COLOUR CHANGES [None]
  - SWEAT DISCOLOURATION [None]
